FAERS Safety Report 8000423-8 (Version None)
Quarter: 2011Q4

REPORT INFORMATION
  Report Type: 
  Country: None (occurrence: None)
  Receive Date: 20111222
  Receipt Date: 20110309
  Transmission Date: 20120403
  Serious: No
  Sender: FDA-Public Use
  Company Number: US-BRISTOL-MYERS SQUIBB COMPANY-15597651

PATIENT
  Age: 71 Year
  Sex: Male
  Weight: 73 kg

DRUGS (9)
  1. PRAVASTATIN SODIUM [Suspect]
     Indication: BLOOD CHOLESTEROL INCREASED
     Dosage: START 2 YEARS AGO. AT BEDTIME.DISCTD ON 06MAR2011
     Dates: start: 20070101
  2. PLAVIX [Concomitant]
  3. KLONOPIN [Concomitant]
     Indication: SLEEP DISORDER
  4. VITAMIN TAB [Concomitant]
  5. PRAVACHOL [Suspect]
     Indication: BLOOD CHOLESTEROL INCREASED
  6. LISINOPRIL [Concomitant]
  7. CARDIZEM [Concomitant]
  8. REQUIP [Concomitant]
     Indication: RESTLESS LEGS SYNDROME
  9. LASIX [Concomitant]

REACTIONS (2)
  - NEUROPATHY PERIPHERAL [None]
  - MUSCULAR WEAKNESS [None]
